FAERS Safety Report 17032863 (Version 3)
Quarter: 2024Q4

REPORT INFORMATION
  Report Type: Spontaneous
  Country: US (occurrence: US)
  Receive Date: 20191114
  Receipt Date: 20241106
  Transmission Date: 20250115
  Serious: Yes (Other)
  Sender: PFIZER
  Company Number: US-PFIZER INC-2019489674

PATIENT
  Age: 68 Year
  Sex: Female
  Weight: 88.889 kg

DRUGS (4)
  1. IBRANCE [Suspect]
     Active Substance: PALBOCICLIB
     Indication: Breast cancer metastatic
     Dosage: 125 MG, 1 CAP QD(EVERY DAY) ON DAYS 1-21 OF 28 DAY
     Route: 048
     Dates: start: 201510
  2. IBRANCE [Suspect]
     Active Substance: PALBOCICLIB
     Dosage: D(DAY)1-D(DAY)14 OF 21 D(DAY)/ 2 WEEKS ON AND ONE WEEK OFF.
     Dates: start: 20171213
  3. FEMARA [Concomitant]
     Active Substance: LETROZOLE
     Dosage: UNK, DAILY
     Dates: start: 201510
  4. FEMARA [Concomitant]
     Active Substance: LETROZOLE
     Dosage: UNK, DAILY
     Dates: start: 20171213

REACTIONS (4)
  - Osteonecrosis of jaw [Unknown]
  - Pancytopenia [Unknown]
  - Hot flush [Unknown]
  - Red blood cell macrocytes present [Unknown]

NARRATIVE: CASE EVENT DATE: 20200507
